FAERS Safety Report 11223008 (Version 1)
Quarter: 2015Q2

REPORT INFORMATION
  Report Type: Spontaneous
  Country: US (occurrence: US)
  Receive Date: 20150626
  Receipt Date: 20150626
  Transmission Date: 20150821
  Serious: No
  Sender: FDA-Public Use
  Company Number: US-ASTRAZENECA-2015SE59951

PATIENT
  Age: 31507 Day
  Sex: Female
  Weight: 55.3 kg

DRUGS (1)
  1. ARIMIDEX [Suspect]
     Active Substance: ANASTROZOLE
     Indication: BREAST CANCER FEMALE
     Route: 048
     Dates: start: 2007, end: 201409

REACTIONS (3)
  - Body height decreased [Unknown]
  - Fatigue [Unknown]
  - Onychomycosis [Unknown]

NARRATIVE: CASE EVENT DATE: 20150616
